FAERS Safety Report 18427236 (Version 1)
Quarter: 2020Q4

REPORT INFORMATION
  Report Type: Spontaneous
  Country: SA (occurrence: SA)
  Receive Date: 20201026
  Receipt Date: 20201026
  Transmission Date: 20210114
  Serious: Yes (Hospitalization)
  Sender: FDA-Public Use
  Company Number: SA-GLAXOSMITHKLINE-SA2020GSK205790

PATIENT
  Age: 22 Year
  Sex: Female

DRUGS (5)
  1. DIPHENHYDRAMINE. [Concomitant]
     Active Substance: DIPHENHYDRAMINE
     Indication: FACIAL PARALYSIS
     Dosage: UNK
     Route: 042
     Dates: start: 201902
  2. BENZTROPINE. [Concomitant]
     Active Substance: BENZTROPINE
     Indication: FACIAL PARALYSIS
     Dosage: UNK
     Dates: start: 201902
  3. PREDNISOLONE. [Suspect]
     Active Substance: PREDNISOLONE
     Indication: FACIAL PARALYSIS
     Dosage: 60 MG
     Route: 048
     Dates: start: 201902
  4. ACYCLOVIR. [Suspect]
     Active Substance: ACYCLOVIR
     Indication: FACIAL PARALYSIS
     Dosage: 400 MG
     Route: 048
     Dates: start: 201902
  5. PARACETAMOL [Concomitant]
     Active Substance: ACETAMINOPHEN
     Indication: FACIAL PARALYSIS
     Dosage: UNK
     Dates: start: 201902

REACTIONS (5)
  - Headache [Recovered/Resolved]
  - Therapy non-responder [Unknown]
  - Drug intolerance [Recovered/Resolved]
  - Ear pain [Recovered/Resolved]
  - Tinnitus [Recovered/Resolved]

NARRATIVE: CASE EVENT DATE: 201902
